FAERS Safety Report 4759436-1 (Version None)
Quarter: 2005Q3

REPORT INFORMATION
  Report Type: 
  Country: None (occurrence: None)
  Receive Date: 20050831
  Receipt Date: 20050822
  Transmission Date: 20060218
  Serious: No
  Sender: FDA-Public Use
  Company Number: 2005-131897-NL

PATIENT
  Age: 20 Year
  Sex: Female
  Weight: 60 kg

DRUGS (8)
  1. SUCCINYLCHOLINE CHLORIDE [Suspect]
     Indication: INTUBATION
     Dosage: 120 MG ONCE INTRAVENOUS (NOS), AT 05:57 HR
     Route: 042
  2. SUCCINYLCHOLINE CHLORIDE [Suspect]
     Indication: INTUBATION
     Dosage: 100 MG ONCE INTRAVENOUS (NOS), AT 06:02 HR
     Route: 042
  3. SUCCINYLCHOLINE CHLORIDE [Suspect]
     Indication: INTUBATION
     Dosage: 100 MG ONCE INTRAVENOUS (NOS), AT 06:27 HR
     Route: 042
  4. LORAZEPAM [Concomitant]
  5. LIDOCAINE [Concomitant]
  6. ETOMIDATE [Concomitant]
  7. VECURONIUM [Concomitant]
  8. MIDAZOLAM [Concomitant]

REACTIONS (2)
  - INTUBATION COMPLICATION [None]
  - TRISMUS [None]
